FAERS Safety Report 25990419 (Version 1)
Quarter: 2025Q4

REPORT INFORMATION
  Report Type: Spontaneous
  Country: EU (occurrence: EU)
  Receive Date: 20251103
  Receipt Date: 20251103
  Transmission Date: 20260117
  Serious: Yes (Death)
  Sender: PFIZER
  Company Number: EU-PFIZER INC-202500212350

PATIENT
  Age: 75 Year
  Sex: Male

DRUGS (2)
  1. TALAZOPARIB [Suspect]
     Active Substance: TALAZOPARIB
     Indication: Prostate cancer metastatic
     Dosage: UNK
     Dates: start: 202404
  2. ENZALUTAMIDE [Suspect]
     Active Substance: ENZALUTAMIDE
     Indication: Prostate cancer metastatic
     Dosage: UNK
     Dates: start: 202404

REACTIONS (5)
  - Death [Fatal]
  - Dyspnoea exertional [Unknown]
  - Prostatic specific antigen increased [Unknown]
  - Fatigue [Recovering/Resolving]
  - Anaemia [Recovered/Resolved]

NARRATIVE: CASE EVENT DATE: 20240510
